FAERS Safety Report 9144654 (Version 4)
Quarter: 2013Q3

REPORT INFORMATION
  Report Type: Report from Study
  Country: US (occurrence: US)
  Receive Date: 20130306
  Receipt Date: 20130719
  Transmission Date: 20140515
  Serious: Yes (Other)
  Sender: FDA-Public Use
  Company Number: US-ABBOTT-13P-163-1057541-00

PATIENT
  Sex: Female
  Weight: 44.04 kg

DRUGS (1)
  1. HUMIRA [Suspect]
     Indication: RHEUMATOID ARTHRITIS
     Route: 058
     Dates: start: 201301

REACTIONS (2)
  - Pharyngeal disorder [Recovered/Resolved]
  - Rheumatoid arthritis [Not Recovered/Not Resolved]
